FAERS Safety Report 7328206-2 (Version None)
Quarter: 2011Q1

REPORT INFORMATION
  Report Type: 
  Country: None (occurrence: None)
  Receive Date: 20110222
  Receipt Date: 20110210
  Transmission Date: 20110831
  Serious: Yes (Hospitalization)
  Sender: FDA-Public Use
  Company Number: 20110116

PATIENT
  Sex: Female

DRUGS (3)
  1. BLOOD PRESSURE MEDICATION [Concomitant]
  2. BLOOD THINER [Concomitant]
  3. DEXAMETHASONE SODIUM PHOSPHATE [Suspect]
     Indication: ARTHRITIS
     Dates: start: 20090101

REACTIONS (4)
  - CEREBROVASCULAR ACCIDENT [None]
  - PAPULE [None]
  - SCRATCH [None]
  - ERYTHEMA [None]
